FAERS Safety Report 4318507-4 (Version None)
Quarter: 2004Q1

REPORT INFORMATION
  Report Type: 
  Country: None (occurrence: None)
  Receive Date: 20040316
  Receipt Date: 20040316
  Transmission Date: 20041129
  Serious: No
  Sender: FDA-Public Use
  Company Number: None

PATIENT
  Sex: Male

DRUGS (1)
  1. ISONIAZID [Suspect]
     Indication: TUBERCULIN TEST POSITIVE
     Dosage: 900 MG TAB PO TWICE WEEKLY
     Route: 048
     Dates: start: 20030513, end: 20030912

REACTIONS (2)
  - ASTHENIA [None]
  - DRUG INTOLERANCE [None]
